FAERS Safety Report 9485223 (Version 1)
Quarter: 2013Q3

REPORT INFORMATION
  Report Type: Spontaneous
  Country: NO (occurrence: NO)
  Receive Date: 20130828
  Receipt Date: 20130828
  Transmission Date: 20140515
  Serious: Yes (Other)
  Sender: FDA-Public Use
  Company Number: NO-JHP PHARMACEUTICALS, LLC-JHP201300520

PATIENT
  Age: 11 Year
  Sex: Male
  Weight: 60 kg

DRUGS (6)
  1. ADRENALIN [Suspect]
     Dosage: 50 ?G X 7 DOSES
     Route: 042
  2. DEXCHLORPHENIRAMINE [Suspect]
     Dosage: 5 MG, UNK
     Route: 042
  3. HYDROCORTISONE [Concomitant]
     Dosage: 100 UNK, UNK
     Route: 042
  4. THIOPENTONE [Concomitant]
  5. FENTANYL [Concomitant]
  6. ROCURONIUM [Concomitant]
     Dosage: 60 MG, UNK

REACTIONS (1)
  - Drug ineffective [Recovered/Resolved]
